FAERS Safety Report 5677718-6 (Version None)
Quarter: 2008Q1

REPORT INFORMATION
  Report Type: 
  Country: None (occurrence: None)
  Receive Date: 20080324
  Receipt Date: 20080319
  Transmission Date: 20080703
  Serious: Yes (Other)
  Sender: FDA-Public Use
  Company Number: US-BOEHRINGER INGELHEIM GMBH, GERMANY-2008-BP-04311BP

PATIENT
  Age: 77 Year
  Sex: Female

DRUGS (4)
  1. ATROVENT HFA [Suspect]
     Indication: ASTHMA
  2. SEREVENT [Suspect]
     Indication: ASTHMA
     Route: 055
  3. SEREVENT [Suspect]
     Indication: ASTHMA
     Route: 055
     Dates: start: 20080201
  4. AZMACORT [Suspect]

REACTIONS (2)
  - ASTHMA [None]
  - WHEEZING [None]
